FAERS Safety Report 19961143 (Version 1)
Quarter: 2021Q4

REPORT INFORMATION
  Report Type: Report from Study
  Country: GT (occurrence: GT)
  Receive Date: 20211016
  Receipt Date: 20211016
  Transmission Date: 20220303
  Serious: Yes (Death)
  Sender: FDA-Public Use
  Company Number: GT-NOVARTISPH-NVSC2021GT236712

PATIENT
  Age: 84 Year
  Sex: Male

DRUGS (1)
  1. EXELON [Suspect]
     Active Substance: RIVASTIGMINE TARTRATE
     Indication: Product used for unknown indication
     Dosage: 4.5 MG, SUSPENSION, STARTED APPROXIMATELY 8 YEARS AGO AND STOPPED APPROXIMATELY 3 YEARS AGO
     Route: 065

REACTIONS (1)
  - Death [Fatal]
